FAERS Safety Report 6965882-8 (Version None)
Quarter: 2010Q3

REPORT INFORMATION
  Report Type: 
  Country: None (occurrence: None)
  Receive Date: 20100903
  Receipt Date: 20100826
  Transmission Date: 20110219
  Serious: Yes (Hospitalization)
  Sender: FDA-Public Use
  Company Number: US-US-EMD SERONO, INC.-7005319

PATIENT
  Sex: Female
  Weight: 49 kg

DRUGS (6)
  1. REBIF [Suspect]
     Indication: RELAPSING-REMITTING MULTIPLE SCLEROSIS
     Route: 058
     Dates: start: 20030905
  2. NEURONTIN [Concomitant]
  3. TRILEPTAL [Concomitant]
  4. CYMBALTA [Concomitant]
  5. BUSPAR [Concomitant]
  6. VALIUM [Concomitant]

REACTIONS (9)
  - ABDOMINAL ADHESIONS [None]
  - DEHYDRATION [None]
  - DIARRHOEA [None]
  - DYSPHAGIA [None]
  - INFLUENZA LIKE ILLNESS [None]
  - RELAPSING-REMITTING MULTIPLE SCLEROSIS [None]
  - SMALL INTESTINAL OBSTRUCTION [None]
  - SPEECH DISORDER [None]
  - URINARY TRACT INFECTION [None]
